FAERS Safety Report 16900460 (Version 1)
Quarter: 2019Q4

REPORT INFORMATION
  Report Type: Spontaneous
  Country: US (occurrence: US)
  Receive Date: 20190816
  Receipt Date: 20190816
  Transmission Date: 20200122
  Serious: Yes (Hospitalization)
  Sender: FDA-Public Use
  Company Number: None

PATIENT
  Age: 77 Year
  Sex: Male
  Weight: 106.6 kg

DRUGS (2)
  1. CARBOPLATIN. [Suspect]
     Active Substance: CARBOPLATIN
     Dates: end: 20180925
  2. TAXOL [Suspect]
     Active Substance: PACLITAXEL
     Dates: end: 20180925

REACTIONS (6)
  - Immune-mediated pneumonitis [None]
  - Pneumonia [None]
  - Pulmonary mass [None]
  - Cough [None]
  - Radiation pneumonitis [None]
  - Dyspnoea exertional [None]

NARRATIVE: CASE EVENT DATE: 20190513
